FAERS Safety Report 7434310-0 (Version None)
Quarter: 2011Q2

REPORT INFORMATION
  Report Type: 
  Country: None (occurrence: None)
  Receive Date: 20110425
  Receipt Date: 20110420
  Transmission Date: 20111010
  Serious: No
  Sender: FDA-Public Use
  Company Number: US-PFIZER INC-2011086524

PATIENT
  Sex: Male
  Weight: 90.703 kg

DRUGS (6)
  1. TRAZODONE HCL [Suspect]
     Indication: INSOMNIA
     Dosage: 100 MG, 1X/DAY
     Dates: end: 20110301
  2. ALPRAZOLAM [Concomitant]
     Indication: ANXIETY
     Dosage: 1 MG, 3X/DAY
  3. CHANTIX [Suspect]
     Indication: SMOKING CESSATION THERAPY
     Dosage: 0.5 MG, 1X/DAY
     Route: 048
     Dates: start: 20110419
  4. ZYPREXA [Suspect]
     Indication: INSOMNIA
     Dosage: 20 MG, 1X/DAY
     Route: 048
     Dates: end: 20110301
  5. RISPERDAL [Suspect]
     Indication: INSOMNIA
     Dosage: 50 MG, 1X/DAY
     Route: 048
     Dates: start: 20110201, end: 20110401
  6. LUNESTA [Suspect]
     Indication: INSOMNIA
     Dosage: 2 MG, 1X/DAY
     Route: 048
     Dates: start: 20110401

REACTIONS (5)
  - HEART RATE INCREASED [None]
  - NERVOUSNESS [None]
  - ABNORMAL DREAMS [None]
  - FATIGUE [None]
  - INSOMNIA [None]
